FAERS Safety Report 7793751-2 (Version None)
Quarter: 2011Q4

REPORT INFORMATION
  Report Type: 
  Country: None (occurrence: None)
  Receive Date: 20111003
  Receipt Date: 20110928
  Transmission Date: 20120403
  Serious: Yes (Hospitalization)
  Sender: FDA-Public Use
  Company Number: US-AMGEN-USACT2011027149

PATIENT
  Age: 49 Year
  Sex: Female

DRUGS (11)
  1. RITALIN [Concomitant]
     Dosage: 10 MG, BID
  2. MS CONTIN [Concomitant]
     Dosage: 30 MG, UNK
  3. LOVENOX [Concomitant]
     Dosage: 50 MG, BID
  4. DECITABINE [Concomitant]
     Indication: COLORECTAL CANCER METASTATIC
     Dosage: 45 MG/M2, UNK
     Dates: start: 20110325, end: 20110505
  5. LEXAPRO [Concomitant]
     Dosage: 10 MG, UNK
  6. MEGACE [Concomitant]
     Dosage: 80 MG, UNK
  7. REGLAN [Concomitant]
     Dosage: UNK UNK, PRN
  8. COMPAZINE [Concomitant]
     Dosage: UNK UNK, PRN
  9. DOCUSATE [Concomitant]
     Dosage: 100 MG, BID
  10. PANITUMUMAB [Suspect]
     Indication: COLON CANCER METASTATIC
     Dosage: 6 MG/KG, UNK
     Dates: start: 20110324, end: 20110428
  11. LORTAB [Concomitant]
     Dosage: UNK

REACTIONS (11)
  - CHRONIC OBSTRUCTIVE PULMONARY DISEASE [None]
  - NICOTINE DEPENDENCE [None]
  - TROPONIN INCREASED [None]
  - ANXIETY [None]
  - HAEMOPTYSIS [None]
  - COUGH [None]
  - CONSTIPATION [None]
  - HYPOXIA [None]
  - VENA CAVA THROMBOSIS [None]
  - PARAINFLUENZAE VIRUS INFECTION [None]
  - DYSPNOEA [None]
